FAERS Safety Report 16705375 (Version 1)
Quarter: 2019Q3

REPORT INFORMATION
  Report Type: Spontaneous
  Country: US (occurrence: US)
  Receive Date: 20190815
  Receipt Date: 20190815
  Transmission Date: 20191004
  Serious: Yes (Hospitalization)
  Sender: FDA-Public Use
  Company Number: US-ERA CONSULTING GMBH-2019US004972

PATIENT

DRUGS (2)
  1. CARBOPLA + DOCETAXEL [Concomitant]
     Indication: BREAST CANCER
     Dosage: UNK
     Route: 042
  2. UDENYCA [Suspect]
     Active Substance: PEGFILGRASTIM-CBQV
     Indication: INFECTION PROPHYLAXIS
     Dosage: 3 MG, CYCLIC
     Route: 058
     Dates: start: 20190421

REACTIONS (3)
  - Swollen tongue [Unknown]
  - Rash [Unknown]
  - Lip swelling [Unknown]
